FAERS Safety Report 12572520 (Version 2)
Quarter: 2016Q4

REPORT INFORMATION
  Report Type: Report from Study
  Country: GB (occurrence: GB)
  Receive Date: 20160719
  Receipt Date: 20161013
  Transmission Date: 20170207
  Serious: Yes (Hospitalization, Other)
  Sender: FDA-Public Use
  Company Number: GB-AMGEN-GBRSL2016091347

PATIENT
  Age: 89 Year
  Sex: Female

DRUGS (2)
  1. TINZAPARIN [Concomitant]
     Active Substance: TINZAPARIN
     Dosage: 7000 IU/ML, UNK
  2. ARANESP [Suspect]
     Active Substance: DARBEPOETIN ALFA
     Indication: PRODUCT USED FOR UNKNOWN INDICATION
     Dosage: 40 MUG, UNK
     Route: 065

REACTIONS (7)
  - Gastric disorder [Unknown]
  - Fatigue [Unknown]
  - Faeces discoloured [Unknown]
  - Rectal cancer [Unknown]
  - Gastric ulcer [Unknown]
  - Abdominal pain upper [Unknown]
  - Thrombosis [Unknown]

NARRATIVE: CASE EVENT DATE: 2016
